FAERS Safety Report 12468347 (Version 1)
Quarter: 2016Q2

REPORT INFORMATION
  Report Type: Spontaneous
  Country: US (occurrence: US)
  Receive Date: 20160615
  Receipt Date: 20160615
  Transmission Date: 20160815
  Serious: No
  Sender: FDA-Public Use
  Company Number: US-009507513-1606USA000594

PATIENT
  Age: 93 Year
  Sex: Female

DRUGS (1)
  1. ZOCOR [Suspect]
     Active Substance: SIMVASTATIN
     Dosage: UNK
     Dates: start: 2015

REACTIONS (2)
  - Drug hypersensitivity [Unknown]
  - Drug eruption [Unknown]

NARRATIVE: CASE EVENT DATE: 20150807
